FAERS Safety Report 15810260 (Version 1)
Quarter: 2019Q1

REPORT INFORMATION
  Report Type: Spontaneous
  Country: US (occurrence: US)
  Receive Date: 20190111
  Receipt Date: 20190111
  Transmission Date: 20190417
  Serious: Yes (Other)
  Sender: FDA-Public Use
  Company Number: US-ROCHE-2179693

PATIENT
  Age: 48 Year
  Sex: Male

DRUGS (8)
  1. BENDAMUSTINE [Concomitant]
     Active Substance: BENDAMUSTINE
     Dosage: OVER 15 MIN
     Route: 042
  2. BENDAMUSTINE [Concomitant]
     Active Substance: BENDAMUSTINE
     Indication: CHRONIC LYMPHOCYTIC LEUKAEMIA
     Dosage: OVER 10 MINUTES ON DAY 1 FOR CYCLE 1
     Route: 042
     Dates: start: 20170706
  3. ONDANSETRON [Concomitant]
     Active Substance: ONDANSETRON
     Route: 042
  4. METHYLPREDNISOLONE. [Concomitant]
     Active Substance: METHYLPREDNISOLONE
     Route: 048
  5. DIPHENHYDRAMINE. [Concomitant]
     Active Substance: DIPHENHYDRAMINE
     Route: 065
  6. RITUXAN [Suspect]
     Active Substance: RITUXIMAB
     Indication: CHRONIC LYMPHOCYTIC LEUKAEMIA
     Dosage: ON DAY 1 FOR CYCLE 1
     Route: 042
     Dates: start: 20170706
  7. FAMOTIDINE. [Concomitant]
     Active Substance: FAMOTIDINE
     Route: 042
  8. DIPHENHYDRAMINE. [Concomitant]
     Active Substance: DIPHENHYDRAMINE
     Route: 042

REACTIONS (1)
  - Infusion related reaction [Recovered/Resolved]
